FAERS Safety Report 8803768 (Version 1)
Quarter: 2012Q4

REPORT INFORMATION
  Report Type: 
  Country: KR (occurrence: KR)
  Receive Date: 20120924
  Receipt Date: 20120924
  Transmission Date: 20130627
  Serious: Yes (Hospitalization)
  Sender: FDA-Public Use
  Company Number: KR-009507513-1209KOR007566

PATIENT

DRUGS (1)
  1. PROPECIA [Suspect]
     Dosage: UNK mg, UNK
     Route: 048

REACTIONS (1)
  - Platelet count decreased [Unknown]
